FAERS Safety Report 14128665 (Version 1)
Quarter: 2017Q4

REPORT INFORMATION
  Report Type: Spontaneous
  Country: US (occurrence: US)
  Receive Date: 20171026
  Receipt Date: 20171026
  Transmission Date: 20180321
  Serious: Yes (Life-Threatening, Disabling, Other)
  Sender: FDA-Public Use
  Company Number: None

PATIENT
  Sex: Male
  Weight: 91.35 kg

DRUGS (7)
  1. RED YEAST RICE [Concomitant]
     Active Substance: DIETARY SUPPLEMENT
  2. FISH OIL [Concomitant]
     Active Substance: FISH OIL
  3. LISINOPRIL 10MG TAB LEG [Suspect]
     Active Substance: LISINOPRIL
     Indication: HYPERTENSION
     Dosage: ?          QUANTITY:1 TABLET(S);?
     Route: 048
     Dates: start: 20171008, end: 20171013
  4. MULTI-VITAMIN [Concomitant]
     Active Substance: .ALPHA.-TOCOPHEROL ACETATE, DL-\ASCORBIC ACID\CYANOCOBALAMIN\FLUORIDE ION\FOLIC ACID\NIACIN\PYRIDOXINE\RIBOFLAVIN\THIAMINE\VITAMIN A\VITAMIN D
  5. NIACIN. [Concomitant]
     Active Substance: NIACIN
  6. MAGNESIUM/CALCIUM [Concomitant]
  7. TURMERIC [Suspect]
     Active Substance: HERBALS\TURMERIC

REACTIONS (8)
  - Hypertension [None]
  - Malaise [None]
  - Decreased appetite [None]
  - Product size issue [None]
  - Palpitations [None]
  - Nervousness [None]
  - Feeling abnormal [None]
  - Suspected counterfeit product [None]

NARRATIVE: CASE EVENT DATE: 20171013
